FAERS Safety Report 5062003-6 (Version None)
Quarter: 2006Q3

REPORT INFORMATION
  Report Type: 
  Country: None (occurrence: None)
  Receive Date: 20060726
  Receipt Date: 20060717
  Transmission Date: 20061208
  Serious: Yes (Hospitalization)
  Sender: FDA-Public Use
  Company Number: FR-AVENTIS-200612546FR

PATIENT
  Age: 51 Year
  Sex: Female
  Weight: 53 kg

DRUGS (6)
  1. LASILIX [Suspect]
     Route: 042
     Dates: start: 20060609, end: 20060612
  2. TRILEPTAL [Suspect]
     Route: 048
     Dates: start: 20060609
  3. ESIDRIX [Suspect]
     Route: 048
     Dates: start: 20060610, end: 20060617
  4. OFLOCET [Concomitant]
     Route: 048
     Dates: start: 20060614, end: 20060630
  5. OMEPRAZOLE [Concomitant]
     Route: 048
     Dates: start: 20060609
  6. AUGMENTIN '125' [Concomitant]
     Dates: start: 20060614

REACTIONS (8)
  - COMA [None]
  - CONDITION AGGRAVATED [None]
  - ESCHERICHIA URINARY TRACT INFECTION [None]
  - HYPONATRAEMIA [None]
  - RENAL FAILURE [None]
  - RENAL IMPAIRMENT [None]
  - STAPHYLOCOCCAL INFECTION [None]
  - VASCULAR BYPASS GRAFT [None]
